FAERS Safety Report 13954150 (Version 1)
Quarter: 2017Q3

REPORT INFORMATION
  Report Type: Spontaneous
  Country: US (occurrence: US)
  Receive Date: 20170911
  Receipt Date: 20170911
  Transmission Date: 20171128
  Serious: Yes (Other)
  Sender: FDA-Public Use
  Company Number: US-STRIDES ARCOLAB LIMITED-2017SP011466

PATIENT

DRUGS (1)
  1. IBUPROFEN TABLETS, USP 800 MG [Suspect]
     Active Substance: IBUPROFEN
     Indication: MIGRAINE
     Dosage: 800 MG (1 TABLET), BID
     Route: 048
     Dates: start: 2017, end: 201707

REACTIONS (4)
  - Thrombosis [Recovered/Resolved]
  - Burning sensation [Recovered/Resolved]
  - Swollen tongue [Recovered/Resolved]
  - Swelling [Recovered/Resolved]

NARRATIVE: CASE EVENT DATE: 201707
